FAERS Safety Report 6255657-X (Version None)
Quarter: 2009Q3

REPORT INFORMATION
  Report Type: 
  Country: None (occurrence: None)
  Receive Date: 20090701
  Receipt Date: 20090626
  Transmission Date: 20100115
  Serious: Yes (Death)
  Sender: FDA-Public Use
  Company Number: OSCN-PR-0906S-0320

PATIENT
  Sex: Male

DRUGS (3)
  1. OMNISCAN [Suspect]
     Indication: DRUG USE FOR UNKNOWN INDICATION
     Dosage: UNSPECIFIED SINGLE DOSE, UNSPECIFIED SINGLE DOSE, UNSPECIFIED SINGLE DOSE
     Dates: start: 20050317, end: 20050317
  2. OMNISCAN [Suspect]
     Indication: DRUG USE FOR UNKNOWN INDICATION
     Dosage: UNSPECIFIED SINGLE DOSE, UNSPECIFIED SINGLE DOSE, UNSPECIFIED SINGLE DOSE
     Dates: start: 20050318, end: 20050318
  3. OMNISCAN [Suspect]
     Indication: DRUG USE FOR UNKNOWN INDICATION
     Dosage: UNSPECIFIED SINGLE DOSE, UNSPECIFIED SINGLE DOSE, UNSPECIFIED SINGLE DOSE
     Dates: start: 20050414, end: 20050414

REACTIONS (1)
  - NEPHROGENIC SYSTEMIC FIBROSIS [None]
